FAERS Safety Report 10902550 (Version 3)
Quarter: 2015Q4

REPORT INFORMATION
  Report Type: Spontaneous
  Country: IT (occurrence: IT)
  Receive Date: 20150310
  Receipt Date: 20151105
  Transmission Date: 20160304
  Serious: Yes (Life-Threatening)
  Sender: FDA-Public Use
  Company Number: IT-WATSON-2015-04528

PATIENT
  Age: 76 Year
  Sex: Male

DRUGS (2)
  1. LORAZEPAM. [Suspect]
     Active Substance: LORAZEPAM
     Indication: DEPRESSION
     Dosage: 25 MG, TOTAL
     Route: 048
     Dates: start: 20140829
  2. SEROQUEL [Suspect]
     Active Substance: QUETIAPINE FUMARATE
     Indication: DEPRESSION
     Dosage: 2 G, TOTAL
     Route: 048
     Dates: start: 20140829, end: 20140829

REACTIONS (4)
  - Haematemesis [Unknown]
  - Coma [Unknown]
  - Multiple system atrophy [Unknown]
  - Drug abuse [Unknown]

NARRATIVE: CASE EVENT DATE: 20140829
